FAERS Safety Report 4925840-1 (Version None)
Quarter: 2006Q1

REPORT INFORMATION
  Report Type: 
  Country: None (occurrence: None)
  Receive Date: 20060228
  Receipt Date: 20050330
  Transmission Date: 20060701
  Serious: No
  Sender: FDA-Public Use
  Company Number: US-GLAXOSMITHKLINE-A0551904A

PATIENT
  Age: 29 Year
  Sex: Female
  Weight: 63.6 kg

DRUGS (2)
  1. LAMICTAL [Suspect]
     Indication: BIPOLAR DISORDER
     Dosage: 25MG PER DAY
     Route: 048
     Dates: start: 20050216
  2. NO CONCURRENT MEDICATION [Concomitant]

REACTIONS (1)
  - MENORRHAGIA [None]
